FAERS Safety Report 24592033 (Version 2)
Quarter: 2024Q4

REPORT INFORMATION
  Report Type: Spontaneous
  Country: US (occurrence: US)
  Receive Date: 20241108
  Receipt Date: 20241115
  Transmission Date: 20250115
  Serious: Yes (Other)
  Sender: CATALYST PHARMA
  Company Number: US-CATALYST PHARMACEUTICALS, INC-US-CATA-24-01156

PATIENT
  Sex: Male
  Weight: 108.84 kg

DRUGS (2)
  1. FIRDAPSE [Suspect]
     Active Substance: AMIFAMPRIDINE PHOSPHATE
     Indication: Myasthenic syndrome
     Dosage: 1 TABLET 2 TIMES PER DAY
     Route: 048
     Dates: start: 20240724, end: 2024
  2. FIRDAPSE [Suspect]
     Active Substance: AMIFAMPRIDINE PHOSPHATE
     Dosage: 60 MG (1 TABLET 6 TIMES A DAY)
     Route: 048
     Dates: start: 20240919

REACTIONS (8)
  - Myasthenic syndrome [Not Recovered/Not Resolved]
  - Condition aggravated [Not Recovered/Not Resolved]
  - Gait disturbance [Unknown]
  - Emotional disorder [Unknown]
  - Herpes zoster [Not Recovered/Not Resolved]
  - Pain [Unknown]
  - Therapeutic response shortened [Unknown]
  - Intentional product misuse [Unknown]

NARRATIVE: CASE EVENT DATE: 20240101
